FAERS Safety Report 16296829 (Version 3)
Quarter: 2020Q1

REPORT INFORMATION
  Report Type: Report from Study
  Country: None (occurrence: AR)
  Receive Date: 20190510
  Receipt Date: 20200313
  Transmission Date: 20200409
  Serious: Yes (Life-Threatening, Hospitalization, Other)
  Sender: FDA-Public Use
  Company Number: AR-ABBVIE-19K-007-2776415-00

PATIENT
  Age: 44 Year
  Sex: Female

DRUGS (1)
  1. HUMIRA [Suspect]
     Active Substance: ADALIMUMAB
     Indication: CROHN^S DISEASE
     Route: 058
     Dates: start: 20180208, end: 2018

REACTIONS (5)
  - Medical induction of coma [Unknown]
  - Seizure [Recovering/Resolving]
  - Peritonitis [Unknown]
  - Status epilepticus [Recovering/Resolving]
  - Encephalitis [Unknown]

NARRATIVE: CASE EVENT DATE: 2018
